FAERS Safety Report 10472282 (Version 1)
Quarter: 2014Q3

REPORT INFORMATION
  Report Type: Spontaneous
  Country: US (occurrence: None)
  Receive Date: 20140922
  Receipt Date: 20140922
  Transmission Date: 20150326
  Serious: Yes (Hospitalization)
  Sender: FDA-Public Use
  Company Number: FK2014037434

PATIENT
  Age: 78 Year
  Sex: Female
  Weight: 88 kg

DRUGS (4)
  1. CELECOXIB. [Suspect]
     Active Substance: CELECOXIB
     Indication: ADENOCARCINOMA OF COLON
     Dates: start: 20120911, end: 20121002
  2. LEUCOVORIN CALCIUM FOR INJECTION (LEUCOVORIN CALCIUM) (LEUCOVORIN CALCIUM) [Suspect]
     Active Substance: LEUCOVORIN CALCIUM
     Indication: ADENOCARCINOMA OF COLON
     Dosage: NOT OTHERWISE SPECIFIED
     Route: 042
     Dates: start: 20120911
  3. FLUOROURACIL (FLUOROURACIL) (FLUOROURACIL) [Suspect]
     Active Substance: FLUOROURACIL
     Indication: ADENOCARCINOMA OF COLON
     Dosage: DRIP
     Route: 042
     Dates: start: 20120911
  4. ELOXATIN [Suspect]
     Active Substance: OXALIPLATIN
     Indication: ADENOCARCINOMA OF COLON
     Dosage: NOT OTHERWISE SPECIFIED
     Route: 042
     Dates: start: 20120911

REACTIONS (2)
  - Lobar pneumonia [None]
  - Lung infection [None]

NARRATIVE: CASE EVENT DATE: 20121001
